FAERS Safety Report 15829423 (Version 2)
Quarter: 2019Q2

REPORT INFORMATION
  Report Type: Spontaneous
  Country: US (occurrence: US)
  Receive Date: 20190115
  Receipt Date: 20190415
  Transmission Date: 20190711
  Serious: No
  Sender: FDA-Public Use
  Company Number: US-ALLERGAN-1842609US

PATIENT
  Sex: Male

DRUGS (7)
  1. RESTASIS [Suspect]
     Active Substance: CYCLOSPORINE
     Indication: DRY EYE
     Dosage: UNK
     Route: 047
  2. TIMOLOL MALEATE. [Suspect]
     Active Substance: TIMOLOL MALEATE
     Indication: PRODUCT USED FOR UNKNOWN INDICATION
     Dosage: UNK
     Route: 047
  3. UNSPECIFIED OTHER PROSTAGLANDINS OR PROSTAMIDES [Concomitant]
     Dosage: UNK
     Route: 047
  4. LATISSE [Concomitant]
     Active Substance: BIMATOPROST
     Indication: GROWTH OF EYELASHES
     Dosage: 2 GTT, QHS
     Route: 061
     Dates: start: 201806
  5. ANTIBIOTIC EYE OITMENT [Concomitant]
     Indication: EYE INFECTION
     Dosage: UNK
     Route: 047
  6. ANTIBIOTIC EYE DROP [Concomitant]
     Indication: EYE INFECTION
     Dosage: UNK
     Route: 047
  7. LUMIFY [Suspect]
     Active Substance: BRIMONIDINE TARTRATE
     Indication: DRY EYE
     Dosage: UNK
     Route: 047

REACTIONS (1)
  - Madarosis [Unknown]
